FAERS Safety Report 22623757 (Version 1)
Quarter: 2023Q2

REPORT INFORMATION
  Report Type: Spontaneous
  Country: JP (occurrence: JP)
  Receive Date: 20230621
  Receipt Date: 20230621
  Transmission Date: 20230721
  Serious: Yes (Death, Hospitalization, Other)
  Sender: FDA-Public Use
  Company Number: JP-ASTELLAS-2023JP005232

PATIENT
  Age: 73 Year
  Sex: Male

DRUGS (4)
  1. PADCEV [Suspect]
     Active Substance: ENFORTUMAB VEDOTIN-EJFV
     Indication: Ureteric cancer
     Route: 041
     Dates: start: 20230413, end: 20230420
  2. Myser [Concomitant]
     Indication: Exfoliative rash
     Dosage: UNK UNK, UNKNOWN FREQ.
     Route: 065
  3. GLYCOSAMINOGLYCANS [Concomitant]
     Active Substance: GLYCOSAMINOGLYCANS
     Indication: Exfoliative rash
     Dosage: UNK UNK, UNKNOWN FREQ.
     Route: 065
  4. ALLELOCK [Concomitant]
     Active Substance: OLOPATADINE HYDROCHLORIDE
     Indication: Exfoliative rash
     Dosage: UNK UNK, UNKNOWN FREQ.
     Route: 065

REACTIONS (5)
  - Melaena [Fatal]
  - Malaise [Fatal]
  - Gastrointestinal haemorrhage [Unknown]
  - Pneumonia [Fatal]
  - Exfoliative rash [Recovering/Resolving]

NARRATIVE: CASE EVENT DATE: 20230424
